FAERS Safety Report 26086438 (Version 1)
Quarter: 2025Q4

REPORT INFORMATION
  Report Type: Spontaneous
  Country: US (occurrence: US)
  Receive Date: 20251125
  Receipt Date: 20251125
  Transmission Date: 20260118
  Serious: Yes (Death, Other)
  Sender: IMMUNOCORE
  Company Number: US-IMMUNOCORE, LTD-2025-IMC-005064

PATIENT
  Age: 81 Year
  Sex: Male

DRUGS (1)
  1. KIMMTRAK [Suspect]
     Active Substance: TEBENTAFUSP-TEBN
     Indication: Product used for unknown indication
     Dosage: 20 MICROGRAM
     Dates: start: 20250910

REACTIONS (3)
  - Death [Fatal]
  - Complication associated with device [Unknown]
  - Sepsis [Unknown]

NARRATIVE: CASE EVENT DATE: 20250930
